FAERS Safety Report 15220604 (Version 3)
Quarter: 2018Q3

REPORT INFORMATION
  Report Type: Spontaneous
  Country: US (occurrence: US)
  Receive Date: 20180731
  Receipt Date: 20180924
  Transmission Date: 20181010
  Serious: Yes (Hospitalization)
  Sender: FDA-Public Use
  Company Number: US-ENDO PHARMACEUTICALS INC-2018-040221

PATIENT
  Sex: Female

DRUGS (1)
  1. BUPROPION HYDROCHLORIDE XL [Suspect]
     Active Substance: BUPROPION HYDROCHLORIDE
     Indication: DEPRESSION
     Dosage: 150 MG, DAILY (TOOK FOR 5?6 MONTHS)
     Route: 048
     Dates: start: 20160601, end: 20161201

REACTIONS (10)
  - Blood glucose increased [Unknown]
  - Loss of personal independence in daily activities [Unknown]
  - General physical health deterioration [Unknown]
  - Dyspnoea [Unknown]
  - Gait disturbance [Unknown]
  - Dysstasia [Unknown]
  - Hypertension [Unknown]
  - Fall [Unknown]
  - Critical illness [Unknown]
  - Pain [Unknown]

NARRATIVE: CASE EVENT DATE: 2016
